FAERS Safety Report 22602387 (Version 13)
Quarter: 2024Q3

REPORT INFORMATION
  Report Type: Spontaneous
  Country: US (occurrence: US)
  Receive Date: 20230614
  Receipt Date: 20240829
  Transmission Date: 20241016
  Serious: Yes (Disabling, Other)
  Sender: AMGEN
  Company Number: US-HORIZON THERAPEUTICS-HZN-2023-004418

PATIENT
  Age: 61 Year
  Sex: Female

DRUGS (63)
  1. TEPEZZA [Suspect]
     Active Substance: TEPROTUMUMAB-TRBW
     Indication: Endocrine ophthalmopathy
     Dosage: 575 MILLIGRAM, Q3WK (FIRST INFUSION)
     Route: 042
     Dates: start: 20200429
  2. TEPEZZA [Suspect]
     Active Substance: TEPROTUMUMAB-TRBW
     Indication: Graves^ disease
     Dosage: 1154 MILLIGRAM, Q3WK (SECOND INFUSION)
     Route: 042
     Dates: start: 20200526
  3. TEPEZZA [Suspect]
     Active Substance: TEPROTUMUMAB-TRBW
     Dosage: 1136 MILLIGRAM, Q3WK (THIRD INFUSION)
     Route: 042
     Dates: start: 20200616
  4. TEPEZZA [Suspect]
     Active Substance: TEPROTUMUMAB-TRBW
     Dosage: 1144 MILLIGRAM, Q3WK (FOURTH INFUSION)
     Route: 042
     Dates: start: 20200707
  5. TEPEZZA [Suspect]
     Active Substance: TEPROTUMUMAB-TRBW
     Dosage: 1154 MILLIGRAM, Q3WK (FIFTH INFUSION)
     Route: 042
     Dates: start: 20200804
  6. TEPEZZA [Suspect]
     Active Substance: TEPROTUMUMAB-TRBW
     Dosage: 1170 MILLIGRAM, Q3WK (SIXTH INFUSION)
     Route: 042
     Dates: start: 20200831
  7. TEPEZZA [Suspect]
     Active Substance: TEPROTUMUMAB-TRBW
     Dosage: 1166 MILLIGRAM, Q3WK (SEVENTH INFUSION)
     Route: 042
     Dates: start: 20200925
  8. ATROVENT [Concomitant]
     Active Substance: IPRATROPIUM BROMIDE
     Indication: Product used for unknown indication
     Dosage: UNK
     Route: 045
     Dates: start: 20201027
  9. INDERAL [Concomitant]
     Active Substance: PROPRANOLOL HYDROCHLORIDE
     Indication: Product used for unknown indication
     Dosage: 10 MILLIGRAM, TID
     Route: 048
     Dates: start: 20201027
  10. CLARITIN [Concomitant]
     Active Substance: LORATADINE
     Indication: Product used for unknown indication
     Dosage: 10 MG, QD
     Route: 048
  11. SHINGRIX [Concomitant]
     Active Substance: RECOMBINANT VARICELLA ZOSTER VIRUS (VZV) GLYCOPROTEIN E
     Dosage: UNK
     Route: 051
     Dates: start: 20190827
  12. ADVIL [Concomitant]
     Active Substance: IBUPROFEN\IBUPROFEN SODIUM
     Indication: Pain
     Dosage: 600 MG
     Route: 048
  13. CARDIZEM [Concomitant]
     Active Substance: DILTIAZEM HYDROCHLORIDE
     Dosage: UNK
     Dates: start: 20191101
  14. PRINIVIL [Concomitant]
     Active Substance: LISINOPRIL
     Dosage: UNK
     Dates: start: 20190827
  15. MOTRIN [Concomitant]
     Active Substance: IBUPROFEN
     Indication: Pain
     Dosage: 600 MG
     Route: 048
  16. ZESTRIL [Concomitant]
     Active Substance: LISINOPRIL
  17. IBUPROFEN [Concomitant]
     Active Substance: IBUPROFEN
  18. METHIMAZOLE [Concomitant]
     Active Substance: METHIMAZOLE
     Dosage: 2.5 MILLIGRAM, QD
  19. METHIMAZOLE [Concomitant]
     Active Substance: METHIMAZOLE
     Dosage: 5 MILLIGRAM, QD (5MG ONCE DAILY)
     Dates: end: 2024
  20. SPIRIVA RESPIMAT [Concomitant]
     Active Substance: TIOTROPIUM BROMIDE
     Dosage: UNK UNK, QD (INHALE 2 PUFFS INTO THE LUNGS DAILY)
     Dates: start: 20210406
  21. TAPAZOLE [Concomitant]
     Active Substance: METHIMAZOLE
     Dosage: 5 MILLIGRAM, QD
     Route: 048
     Dates: start: 20201027
  22. MIDAZOLAM [Concomitant]
     Active Substance: MIDAZOLAM
     Dosage: 2 MILLIGRAM (1 MG/ML) 2 ML INJECTION
  23. FENTANYL [Concomitant]
     Active Substance: FENTANYL\FENTANYL CITRATE
     Dosage: 100 MICROGRAM (50 MCG/ML 2 ML INJECTION)
  24. HYDROMORPHONE [Concomitant]
     Active Substance: HYDROMORPHONE
     Dosage: 2 MILLIGRAM (2 MG/ML 1 ML INJECTION)
  25. LIDOCAINE [Concomitant]
     Active Substance: LIDOCAINE
     Dosage: 2 MILLILITER (2% MDV 20 ML)
     Route: 042
  26. PROPOFOL [Concomitant]
     Active Substance: PROPOFOL
     Dosage: 200 MILLIGRAM (10 MG/ML 20 ML VIAL)
     Route: 042
  27. ROCURONIUM [Concomitant]
     Active Substance: ROCURONIUM BROMIDE
     Dosage: 44 MILLIGRAM (10 MG/ML 10 ML VIAL)
     Route: 042
  28. SUCCINYLCHOLINE [Concomitant]
     Active Substance: SUCCINYLCHOLINE
     Dosage: 140 MILLIGRAM (20 MG/ML 10 ML INJECTION)
     Route: 042
  29. CEFTRIAXONE [Concomitant]
     Active Substance: CEFTRIAXONE\CEFTRIAXONE SODIUM
     Dosage: 1000 MILLIGRAM ( 40 MG/ML)
     Route: 042
  30. METRONIDAZOLE [Concomitant]
     Active Substance: METRONIDAZOLE
     Dosage: 500 MILLIGRAM (500 MG/100 ML)
  31. DEXAMETHASONE [Concomitant]
     Active Substance: DEXAMETHASONE
     Dosage: 10 MILLIGRAM PER MILLILITER (1 ML VIAL)
     Route: 042
  32. ONDANSETRON [Concomitant]
     Active Substance: ONDANSETRON
     Dosage: 4 MILLIGRAM (2 MG/ML INJECTION)
     Route: 042
  33. SUGAMMADEX [Concomitant]
     Active Substance: SUGAMMADEX
     Dosage: 200 MILLIGRAM (100 MG/ML 2ML VIAL)
     Route: 042
  34. AZELASTINE [Concomitant]
     Active Substance: AZELASTINE\AZELASTINE HYDROCHLORIDE
     Dosage: 137 MICROGRAM, BID ((0.1 %) NASAL SPRAY AEROSOL 2 SPRAYS)
  35. DULERA [Concomitant]
     Active Substance: FORMOTEROL FUMARATE DIHYDRATE\MOMETASONE FUROATE
     Dosage: UNK UNK, BID (100 MEG-5 MEG/INH INHALATION AEROSOL 1 INH)
  36. OMEPRAZOLE [Concomitant]
     Active Substance: OMEPRAZOLE
     Dosage: 40 MILLIGRAM, BID
     Route: 048
  37. RELION VENTOLIN [Concomitant]
     Dosage: HFA 90 MCG/INH INHALATION AEROSOL WITH ADAPTER 1-2 PUFFS
  38. SPIRIVA [Concomitant]
     Active Substance: TIOTROPIUM BROMIDE MONOHYDRATE
     Dosage: 18 MICROGRAM, QD
  39. ZYRTEC [Concomitant]
     Active Substance: CETIRIZINE HYDROCHLORIDE
     Dosage: UNK
  40. PERCOCET [Concomitant]
     Active Substance: ACETAMINOPHEN\OXYCODONE HYDROCHLORIDE
     Dosage: 1 DOSAGE FORM (7.5-325 MG TABLET EVERY 4 HR)
     Route: 048
  41. PERCOCET [Concomitant]
     Active Substance: ACETAMINOPHEN\OXYCODONE HYDROCHLORIDE
     Dosage: 2 DOSAGE FORM (7.5-325 MG TABLET EVERY 4 HR)
     Route: 048
  42. RACEPINEPHRINE [Concomitant]
     Active Substance: RACEPINEPHRINE
     Dosage: 2.25 % 0.5 ML VIAL-NEB 0.5 ML, NEBULIZED INHALATION, EVERY 30 MIN
  43. SODIUM CHLORIDE [Concomitant]
     Active Substance: SODIUM CHLORIDE
     Dosage: 1000 MILLILITER (0.9% ED IV HYDRATION)
     Route: 042
  44. SODIUM CHLORIDE [Concomitant]
     Active Substance: SODIUM CHLORIDE
     Dosage: 20 MILLILITER (FLUSH)
     Route: 042
  45. METOCLOPRAMIDE [Concomitant]
     Active Substance: METOCLOPRAMIDE
     Dosage: 10 MILLIGRAM
     Route: 042
  46. IOPAMIDOL [Concomitant]
     Active Substance: IOPAMIDOL
     Dosage: 100 MILLILITER
     Route: 042
  47. DIATRIZOATE MEGLUMINE [Concomitant]
     Active Substance: DIATRIZOATE MEGLUMINE
     Dosage: 30 MILLILITER
     Route: 048
  48. KETOROLAC [Concomitant]
     Active Substance: KETOROLAC TROMETHAMINE
     Dosage: 30 MILLIGRAM
     Route: 042
  49. SYSTANE (HYPROMELLOSE 2910 (4000 MPA.S)) [Concomitant]
     Active Substance: HYPROMELLOSE 2910 (4000 MPA.S)
     Dosage: 1-4 DROPS BOTH EYES, QD
     Route: 047
  50. INFLUENZA VIRUS VACCINE [Concomitant]
     Active Substance: INFLUENZA VIRUS VACCINE
     Dosage: UNK
     Dates: start: 202110
  51. INFLUENZA VIRUS VACCINE [Concomitant]
     Active Substance: INFLUENZA VIRUS VACCINE
     Dosage: UNK (AMOUNT:0.5UNKNOWN UNIT)
     Dates: start: 20220914
  52. TOZINAMERAN [Concomitant]
     Active Substance: TOZINAMERAN
     Dosage: UNK
     Dates: start: 202110
  53. ZOSTAVAX [Concomitant]
     Active Substance: VARICELLA-ZOSTER VIRUS STRAIN OKA/MERCK LIVE ANTIGEN
     Dosage: 0.65 MILLILITER
     Route: 058
     Dates: start: 20170928, end: 20180908
  54. PNEUMOVAX 23 [Concomitant]
     Active Substance: PNEUMOCOCCAL VACCINE, POLYVALENT 23
     Dosage: 0.5 MILLILITER (25MCG/0.5ML) (INJECT 0.5 MLS INTO THE MUSCLE ONCE FOR 7 DOSE)
     Route: 058
  55. COVID-19 vaccine [Concomitant]
     Dosage: UNK (FIRST DOSE)
     Dates: start: 20201218
  56. COVID-19 vaccine [Concomitant]
     Dosage: UNK (SECOND DOSE)
     Dates: start: 20210107
  57. COVID-19 vaccine [Concomitant]
     Dosage: UNK (THIRD DOSE)
     Dates: start: 20211005
  58. CHOLECALCIFEROL [Concomitant]
     Active Substance: CHOLECALCIFEROL
     Dosage: 50 MICROGRAM, QD
     Route: 048
  59. TIOTROPIUM [Concomitant]
     Active Substance: TIOTROPIUM
     Dosage: UNK (INHALE 2 PUFF DAILY)
  60. ALENDRONATE [Concomitant]
     Active Substance: ALENDRONATE SODIUM
     Dosage: 70 MILLIGRAM, QD
  61. CALCIUM [Concomitant]
     Active Substance: CALCIUM
     Dosage: 500 MILLIGRAM, QD
  62. VITAMIN D [Concomitant]
     Active Substance: VITAMIN D NOS
     Dosage: UNK UNK, QD
  63. METFORMIN HYDROCHLORIDE [Concomitant]
     Active Substance: METFORMIN HYDROCHLORIDE
     Dosage: 500 MILLIGRAM, TID

REACTIONS (34)
  - Physical disability [Unknown]
  - Disability [Unknown]
  - Deafness neurosensory [Not Recovered/Not Resolved]
  - Gaze palsy [Recovered/Resolved]
  - Anxiety [Unknown]
  - Concomitant disease aggravated [Unknown]
  - Pain [Unknown]
  - Injury [Unknown]
  - Emotional distress [Unknown]
  - Quality of life decreased [Unknown]
  - Discomfort [Unknown]
  - Toxicity to various agents [Unknown]
  - Depression [Not Recovered/Not Resolved]
  - Myalgia [Not Recovered/Not Resolved]
  - Diplopia [Unknown]
  - Eyelid disorder [Unknown]
  - Visual impairment [Unknown]
  - Economic problem [Unknown]
  - COVID-19 [Unknown]
  - Headache [Not Recovered/Not Resolved]
  - Muscle spasms [Not Recovered/Not Resolved]
  - Fatigue [Not Recovered/Not Resolved]
  - Dysgeusia [Not Recovered/Not Resolved]
  - Tinnitus [Unknown]
  - Blood glucose increased [Unknown]
  - Eosinophil percentage decreased [Unknown]
  - Lymphocyte percentage increased [Unknown]
  - Mean cell volume increased [Unknown]
  - Neutrophil percentage decreased [Unknown]
  - Presbyopia [Unknown]
  - Dyspepsia [Unknown]
  - Glycosylated haemoglobin increased [Unknown]
  - Blood potassium increased [Unknown]
  - Blepharospasm [Recovered/Resolved]

NARRATIVE: CASE EVENT DATE: 20200101
